FAERS Safety Report 8904255 (Version 1)
Quarter: 2012Q4

REPORT INFORMATION
  Report Type: 
  Country: US (occurrence: US)
  Receive Date: 20121112
  Receipt Date: 20121112
  Transmission Date: 20130627
  Serious: Yes (Other)
  Sender: FDA-Public Use
  Company Number: US-BAYER-2012-118067

PATIENT
  Age: 14 Year
  Sex: Female
  Weight: 45.35 kg

DRUGS (1)
  1. ALEVE CAPLET/TABLET,MIDOL EXTENDED RELIEF CAPLET [Suspect]
     Dosage: 121 DF, ONCE
     Route: 048
     Dates: start: 20121106

REACTIONS (1)
  - Overdose [None]
